FAERS Safety Report 12692663 (Version 1)
Quarter: 2016Q3

REPORT INFORMATION
  Report Type: Other
  Country: PH (occurrence: PH)
  Receive Date: 20160829
  Receipt Date: 20160829
  Transmission Date: 20161109
  Serious: Yes (Other)
  Sender: FDA-Public Use
  Company Number: PH-NOVEL LABORATORIES, INC-2016-03732

PATIENT
  Age: 35 Year
  Sex: Male

DRUGS (2)
  1. CLOBETASOL PROPIONATE. [Suspect]
     Active Substance: CLOBETASOL PROPIONATE
     Indication: PSORIASIS
     Route: 061
  2. SALICYLIC ACID. [Concomitant]
     Active Substance: SALICYLIC ACID
     Indication: PSORIASIS
     Route: 065

REACTIONS (2)
  - Cushing^s syndrome [Unknown]
  - Self-medication [Unknown]
